FAERS Safety Report 15980345 (Version 1)
Quarter: 2019Q1

REPORT INFORMATION
  Report Type: Spontaneous
  Country: US (occurrence: US)
  Receive Date: 20190215
  Receipt Date: 20190215
  Transmission Date: 20190418
  Serious: Yes (Other)
  Sender: FDA-Public Use
  Company Number: None

PATIENT
  Age: 45 Year
  Sex: Female
  Weight: 67 kg

DRUGS (1)
  1. BUPIVICAINE [Suspect]
     Active Substance: BUPIVACAINE
     Indication: SURGERY
     Dosage: ?          OTHER FREQUENCY:ONCE;?
     Dates: start: 20181109, end: 20181109

REACTIONS (2)
  - Disturbance in attention [None]
  - Nystagmus [None]

NARRATIVE: CASE EVENT DATE: 20181109
